FAERS Safety Report 10416599 (Version 2)
Quarter: 2014Q3

REPORT INFORMATION
  Report Type: Spontaneous
  Country: US (occurrence: US)
  Receive Date: 20140828
  Receipt Date: 20140909
  Transmission Date: 20150326
  Serious: Yes (Hospitalization)
  Sender: FDA-Public Use
  Company Number: US-PFIZER INC-2014232842

PATIENT
  Age: 48 Year
  Sex: Male
  Weight: 82.54 kg

DRUGS (2)
  1. CHILDRENS ROBITUSSIN COUGH AND COLD LONG-ACTING [Suspect]
     Active Substance: CHLORPHENIRAMINE MALEATE\DEXTROMETHORPHAN HYDROBROMIDE
     Dosage: 20 ML, 1X/DAY
     Route: 048
     Dates: start: 20140818, end: 201408
  2. PREDNISONE. [Concomitant]
     Active Substance: PREDNISONE
     Dosage: 20 MG, 1X/DAY

REACTIONS (5)
  - Cough [Unknown]
  - Drug ineffective [Unknown]
  - Drug effect variable [Unknown]
  - Hypersensitivity [Unknown]
  - Malaise [Unknown]

NARRATIVE: CASE EVENT DATE: 20140818
